FAERS Safety Report 16899805 (Version 1)
Quarter: 2019Q4

REPORT INFORMATION
  Report Type: Spontaneous
  Country: US (occurrence: US)
  Receive Date: 20190815
  Receipt Date: 20190815
  Transmission Date: 20200122
  Serious: No
  Sender: FDA-Public Use
  Company Number: None

PATIENT
  Age: 49 Year
  Sex: Female

DRUGS (1)
  1. HUMIRA [Suspect]
     Active Substance: ADALIMUMAB
     Dosage: FREQUENCY: EVERY 2 WEEKS
     Route: 058
     Dates: start: 20190801

REACTIONS (2)
  - Cough [None]
  - Hot flush [None]

NARRATIVE: CASE EVENT DATE: 201908
